FAERS Safety Report 6042866-8 (Version None)
Quarter: 2009Q1

REPORT INFORMATION
  Report Type: 
  Country: None (occurrence: None)
  Receive Date: 20090119
  Receipt Date: 20090108
  Transmission Date: 20090719
  Serious: Yes (Death, Life-Threatening)
  Sender: FDA-Public Use
  Company Number: MX-JNJFOC-20090101881

PATIENT
  Age: 38 Year
  Sex: Female
  Weight: 69.5 kg

DRUGS (1)
  1. REMICADE [Suspect]
     Indication: PSORIATIC ARTHROPATHY
     Dosage: OVER A 7 MONTH PERIOD
     Route: 042

REACTIONS (1)
  - PERITONEAL TUBERCULOSIS [None]
